FAERS Safety Report 5149544-8 (Version None)
Quarter: 2006Q4

REPORT INFORMATION
  Report Type: 
  Country: None (occurrence: None)
  Receive Date: 20061113
  Receipt Date: 20060406
  Transmission Date: 20070319
  Serious: No
  Sender: FDA-Public Use
  Company Number: US-GLAXOSMITHKLINE-A0600779A

PATIENT
  Age: 65 Year
  Sex: Male

DRUGS (8)
  1. COREG [Suspect]
     Route: 048
  2. IMITREX [Suspect]
     Indication: CLUSTER HEADACHE
     Dosage: 6MG AS REQUIRED
     Route: 058
  3. NIASPAN [Concomitant]
  4. TOPAMAX [Concomitant]
  5. SLEEPING PILL [Concomitant]
  6. MELATONIN [Concomitant]
  7. COREG [Concomitant]
  8. UNKNOWN MEDICATION [Concomitant]

REACTIONS (3)
  - FLUSHING [None]
  - HOT FLUSH [None]
  - THERAPEUTIC RESPONSE UNEXPECTED [None]
